FAERS Safety Report 20151702 (Version 1)
Quarter: 2021Q4

REPORT INFORMATION
  Report Type: Spontaneous
  Country: NZ (occurrence: NZ)
  Receive Date: 20211206
  Receipt Date: 20211206
  Transmission Date: 20220303
  Serious: Yes (Other)
  Sender: FDA-Public Use
  Company Number: NZ-GLAXOSMITHKLINE-NZCH2021APC086709

PATIENT
  Age: 13 Year
  Sex: Male

DRUGS (1)
  1. TERBINAFINE [Suspect]
     Active Substance: TERBINAFINE
     Indication: Product used for unknown indication
     Dosage: UNK

REACTIONS (4)
  - Stevens-Johnson syndrome [Unknown]
  - Rash [Unknown]
  - Mouth ulceration [Unknown]
  - Liver function test abnormal [Unknown]
